FAERS Safety Report 8780389 (Version 1)
Quarter: 2012Q4

REPORT INFORMATION
  Report Type: Spontaneous
  Country: TW (occurrence: None)
  Receive Date: 20120828
  Receipt Date: 20120828
  Transmission Date: 20130627
  Serious: Yes (Other)
  Sender: FDA-Public Use
  Company Number: FK201202402

PATIENT
  Age: 38 Year
  Sex: Male

DRUGS (2)
  1. VANCOMYCIN [Suspect]
     Indication: BACTERIAL INFECTION
     Dosage: (not otherwise specified)
     Route: 042
  2. TEICOPLANIN [Suspect]
     Indication: BACTERIAL INFECTION
     Dosage: (not otherwise specified)
     Route: 042

REACTIONS (5)
  - Drug hypersensitivity [None]
  - Pyrexia [None]
  - Drug hypersensitivity [None]
  - Rash [None]
  - Eosinophilia [None]
